FAERS Safety Report 7694280-7 (Version None)
Quarter: 2011Q3

REPORT INFORMATION
  Report Type: 
  Country: None (occurrence: None)
  Receive Date: 20110819
  Receipt Date: 20110808
  Transmission Date: 20111222
  Serious: Yes (Hospitalization, Other)
  Sender: FDA-Public Use
  Company Number: US-GLAXOSMITHKLINE-B0740536A

PATIENT
  Age: 34 Year
  Sex: Female

DRUGS (3)
  1. LAMOTRIGINE [Suspect]
     Indication: PRODUCT USED FOR UNKNOWN INDICATION
     Route: 065
  2. ETHANOL [Concomitant]
     Indication: PRODUCT USED FOR UNKNOWN INDICATION
  3. FLUOXETINE [Concomitant]

REACTIONS (8)
  - NERVOUS SYSTEM DISORDER [None]
  - TREMOR [None]
  - TACHYCARDIA [None]
  - CONVULSION [None]
  - MATERNAL EXPOSURE DURING PREGNANCY [None]
  - INTENTIONAL OVERDOSE [None]
  - MUSCLE TWITCHING [None]
  - NEUROTOXICITY [None]
